FAERS Safety Report 8373064-0 (Version None)
Quarter: 2012Q2

REPORT INFORMATION
  Report Type: 
  Country: None (occurrence: None)
  Receive Date: 20120521
  Receipt Date: 20120515
  Transmission Date: 20120825
  Serious: Yes (Other)
  Sender: FDA-Public Use
  Company Number: PHHY2012BR042185

PATIENT
  Sex: Female

DRUGS (2)
  1. HYGROTON [Suspect]
  2. RASILEZ [Suspect]

REACTIONS (1)
  - CATARACT [None]
